FAERS Safety Report 12108339 (Version 1)
Quarter: 2016Q1

REPORT INFORMATION
  Report Type: Spontaneous
  Country: SI (occurrence: SI)
  Receive Date: 20160224
  Receipt Date: 20160224
  Transmission Date: 20160526
  Serious: Yes (Other)
  Sender: FDA-Public Use
  Company Number: SI-ROCHE-1715528

PATIENT
  Age: 82 Year
  Sex: Male

DRUGS (2)
  1. MABTHERA [Suspect]
     Active Substance: RITUXIMAB
     Indication: CHRONIC LYMPHOCYTIC LEUKAEMIA
     Dosage: TOTAL DOSE WAS 800 MG
     Route: 042
     Dates: start: 20160205, end: 20160205
  2. MABTHERA [Suspect]
     Active Substance: RITUXIMAB
     Dosage: TOTAL DOSE WAS 800 MG
     Route: 042
     Dates: start: 20160205, end: 20160205

REACTIONS (3)
  - Dyspnoea [Recovered/Resolved]
  - Hypoxia [Recovered/Resolved]
  - Feeling hot [Recovered/Resolved]

NARRATIVE: CASE EVENT DATE: 20160205
